FAERS Safety Report 13756063 (Version 1)
Quarter: 2017Q3

REPORT INFORMATION
  Report Type: Spontaneous
  Country: US (occurrence: US)
  Receive Date: 20170714
  Receipt Date: 20170714
  Transmission Date: 20171127
  Serious: Yes (Other)
  Sender: FDA-Public Use
  Company Number: US-SA-2017SA121831

PATIENT
  Age: 57 Year
  Sex: Male

DRUGS (8)
  1. TEMOZOLOMIDE. [Suspect]
     Active Substance: TEMOZOLOMIDE
     Indication: CARCINOID TUMOUR OF THE SMALL BOWEL
     Route: 065
  2. OXALIPLATIN. [Suspect]
     Active Substance: OXALIPLATIN
     Indication: CARCINOID TUMOUR OF THE SMALL BOWEL
     Route: 065
  3. TEMOZOLOMIDE. [Suspect]
     Active Substance: TEMOZOLOMIDE
     Indication: CARCINOID TUMOUR OF THE SMALL BOWEL
     Dosage: TREATMENT WAS HALTED IN THE MIDDLE OF THE THIRD COURSE
     Route: 065
  4. OCTREOTIDE. [Suspect]
     Active Substance: OCTREOTIDE
     Indication: CARCINOID TUMOUR OF THE SMALL BOWEL
     Dosage: TREATMENT WAS HALTED IN THE MIDDLE OF THE THIRD COURSE
     Route: 065
  5. OCTREOTIDE. [Suspect]
     Active Substance: OCTREOTIDE
     Indication: CARCINOID TUMOUR OF THE SMALL BOWEL
     Route: 065
  6. CAPECITABINE. [Suspect]
     Active Substance: CAPECITABINE
     Indication: CARCINOID TUMOUR OF THE SMALL BOWEL
     Route: 065
  7. CAPECITABINE. [Suspect]
     Active Substance: CAPECITABINE
     Indication: CARCINOID TUMOUR OF THE SMALL BOWEL
     Dosage: TREATMENT WAS HALTED IN THE MIDDLE OF THE THIRD COURSE
     Route: 065
  8. OCTREOTIDE. [Suspect]
     Active Substance: OCTREOTIDE
     Indication: CARCINOID TUMOUR OF THE SMALL BOWEL
     Route: 065

REACTIONS (4)
  - Off label use [Unknown]
  - Depressed level of consciousness [Unknown]
  - Hepatic encephalopathy [Unknown]
  - Confusional state [Unknown]
